FAERS Safety Report 12519178 (Version 1)
Quarter: 2016Q2

REPORT INFORMATION
  Report Type: Spontaneous
  Country: US (occurrence: US)
  Receive Date: 20160630
  Receipt Date: 20160630
  Transmission Date: 20160815
  Serious: Yes (Other)
  Sender: FDA-Public Use
  Company Number: US-GLAXOSMITHKLINE-US2016093407

PATIENT
  Age: 50 Year
  Sex: Female

DRUGS (8)
  1. AMBIEN [Concomitant]
     Active Substance: ZOLPIDEM TARTRATE
  2. NOVOLOG [Concomitant]
     Active Substance: INSULIN ASPART
  3. OMNARIS [Concomitant]
     Active Substance: CICLESONIDE
  4. ADVAIR HFA [Concomitant]
     Active Substance: FLUTICASONE PROPIONATE\SALMETEROL XINAFOATE
  5. ASTEPRO [Concomitant]
     Active Substance: AZELASTINE HYDROCHLORIDE
  6. NUCALA [Suspect]
     Active Substance: MEPOLIZUMAB
     Indication: ASTHMA
     Dosage: UNK UNK, SINGLE
     Route: 058
     Dates: start: 20160615
  7. ESTRATEST [Concomitant]
     Active Substance: ESTROGENS, ESTERIFIED\METHYLTESTOSTERONE
  8. LANTUS [Concomitant]
     Active Substance: INSULIN GLARGINE

REACTIONS (6)
  - Feeling abnormal [Unknown]
  - Blood glucose decreased [Unknown]
  - Heart rate increased [Recovered/Resolved]
  - Malaise [Recovered/Resolved]
  - Therapeutic response unexpected [Not Recovered/Not Resolved]
  - Loss of consciousness [Unknown]

NARRATIVE: CASE EVENT DATE: 20160615
